FAERS Safety Report 18086433 (Version 1)
Quarter: 2020Q3

REPORT INFORMATION
  Report Type: Spontaneous
  Country: US (occurrence: US)
  Receive Date: 20200729
  Receipt Date: 20200729
  Transmission Date: 20201103
  Serious: Yes (Other)
  Sender: FDA-Public Use
  Company Number: US-CHEMI SPA-2087880

PATIENT
  Age: 42 Year
  Sex: Female

DRUGS (3)
  1. DECITABINE. [Suspect]
     Active Substance: DECITABINE
     Indication: MYELOID LEUKAEMIA
  2. VENETOCLAX. [Concomitant]
     Active Substance: VENETOCLAX
  3. ENASIDENIB [Concomitant]
     Active Substance: ENASIDENIB

REACTIONS (1)
  - Granulocytes abnormal [Unknown]
